FAERS Safety Report 5642194-6 (Version None)
Quarter: 2008Q1

REPORT INFORMATION
  Report Type: 
  Country: None (occurrence: None)
  Receive Date: 20080225
  Receipt Date: 20080216
  Transmission Date: 20080703
  Serious: Yes (Other)
  Sender: FDA-Public Use
  Company Number: 2008AP000472

PATIENT
  Age: 53 Year
  Sex: Male

DRUGS (3)
  1. SELEGILINE HCL [Suspect]
     Indication: PARKINSON'S DISEASE
     Dosage: 5 MG
  2. PRAMIPEXOLE DIHYDROCHLORIDE [Suspect]
     Indication: PARKINSON'S DISEASE
     Dosage: 4.5 MG; QD
  3. LEVODOPA [Suspect]
     Indication: PARKINSON'S DISEASE
     Dosage: 600 MG; QD

REACTIONS (2)
  - OBSESSIVE-COMPULSIVE DISORDER [None]
  - PATHOLOGICAL GAMBLING [None]
